FAERS Safety Report 6819947-1 (Version None)
Quarter: 2010Q3

REPORT INFORMATION
  Report Type: 
  Country: None (occurrence: None)
  Receive Date: 20100707
  Receipt Date: 20100701
  Transmission Date: 20110219
  Serious: Yes (Hospitalization)
  Sender: FDA-Public Use
  Company Number: US-SANOFI-AVENTIS-2010SA038142

PATIENT
  Age: 66 Year
  Sex: Female

DRUGS (1)
  1. MULTAQ [Suspect]
     Route: 048
     Dates: start: 20100529, end: 20100624

REACTIONS (6)
  - BLOOD POTASSIUM DECREASED [None]
  - DECREASED APPETITE [None]
  - EYE SWELLING [None]
  - HYPERSENSITIVITY [None]
  - PYREXIA [None]
  - RASH [None]
